FAERS Safety Report 19217477 (Version 1)
Quarter: 2021Q2

REPORT INFORMATION
  Report Type: Spontaneous
  Country: NL (occurrence: NL)
  Receive Date: 20210505
  Receipt Date: 20210505
  Transmission Date: 20210717
  Serious: Yes (Other)
  Sender: FDA-Public Use
  Company Number: NL-TEVA-2021-NL-1906543

PATIENT
  Sex: Male
  Weight: 83 kg

DRUGS (11)
  1. MACROGOL/ZOUTEN PDR V DRANK (MOVIC/MOLAX/LAXT/GEN) / MOVICOLON POEDER [Concomitant]
     Dosage: POWDER FOR BEVERAGE,  THERAPY START AND END DATE: ASKU
  2. GABAPENTINE CAPSULE 300MG / BRAND NAME NOT SPECIFIED [Concomitant]
     Active Substance: GABAPENTIN
     Dosage: 300 MG, THERAPY START AND END DATE: ASKU
  3. METFORMINE TABLET   850MG / BRAND NAME NOT SPECIFIED [Concomitant]
     Dosage: 850 MG,  THERAPY START AND END DATE: ASKU
  4. ENALAPRIL TABLET 10MG / BRAND NAME NOT SPECIFIED [Concomitant]
     Active Substance: ENALAPRIL
     Dosage: 10 MG,  THERAPY START AND END DATE: ASKU
  5. FOLIUMZUUR TABLET 0,5MG / BRAND NAME NOT SPECIFIED [Concomitant]
     Active Substance: FOLIC ACID
     Dosage: 0,5 MG,  THERAPY START AND END DATE: ASKU
  6. PARACETAMOL TABLET  500MG / BRAND NAME NOT SPECIFIED [Concomitant]
     Dosage: 500 MG,  THERAPY START AND END DATE: ASKU
  7. ACETYLSALICYLZUUR TABLET  80MG / BRAND NAME NOT SPECIFIED [Concomitant]
     Active Substance: ASPIRIN
     Dosage: 80 MG  THERAPY START AND END DATE: ASKU
  8. LORAZEPAM TABLET 1MG / BRAND NAME NOT SPECIFIED [Concomitant]
     Dosage: 1 MG,  THERAPY START AND END DATE: ASKU
  9. PANTOPRAZOL INJECTIEPOEDER 40MG / BRAND NAME NOT SPECIFIED [Concomitant]
     Dosage: LIQUID, 40 MG,  THERAPY START AND END DATE: ASKU
  10. COLECALCIFEROL DRANK  50.000IE/ML / COLECALCIFEROL DRANK 25.000IE/0,5M [Concomitant]
     Dosage: DRINK 25,000IE, THERAPY START AND END DATE: ASKU
  11. QUETIAPINE TABLET FO  25MG / BRAND NAME NOT SPECIFIED [Suspect]
     Active Substance: QUETIAPINE
     Indication: HALLUCINATION
     Dosage: 50 MILLIGRAM DAILY;
     Route: 065
     Dates: start: 20210331, end: 20210402

REACTIONS (1)
  - Coma [Recovered/Resolved]
